FAERS Safety Report 5141955-X (Version None)
Quarter: 2006Q4

REPORT INFORMATION
  Report Type: 
  Country: None (occurrence: None)
  Receive Date: 20061102
  Receipt Date: 20061016
  Transmission Date: 20070319
  Serious: Yes (Other)
  Sender: FDA-Public Use
  Company Number: PHBS2006JP16181

PATIENT

DRUGS (2)
  1. STEROIDS NOS [Suspect]
     Indication: NEPHROTIC SYNDROME
     Route: 065
  2. NEORAL [Suspect]
     Indication: NEPHROTIC SYNDROME
     Dosage: 75 MG/D
     Route: 048

REACTIONS (4)
  - HYPOAESTHESIA [None]
  - INTERVERTEBRAL DISC PROTRUSION [None]
  - RETINOPATHY [None]
  - VISUAL DISTURBANCE [None]
